FAERS Safety Report 18033158 (Version 1)
Quarter: 2020Q3

REPORT INFORMATION
  Report Type: Report from Study
  Country: US (occurrence: US)
  Receive Date: 20200716
  Receipt Date: 20200716
  Transmission Date: 20201103
  Serious: Yes (Hospitalization, Other)
  Sender: FDA-Public Use
  Company Number: US-GILEAD-2020-0482914

PATIENT
  Age: 11 Year
  Sex: Female

DRUGS (14)
  1. CREON [Concomitant]
     Active Substance: PANCRELIPASE AMYLASE\PANCRELIPASE LIPASE\PANCRELIPASE PROTEASE
  2. CYPROHEPTADINE. [Concomitant]
     Active Substance: CYPROHEPTADINE
  3. SYMDEKO [Concomitant]
     Active Substance: IVACAFTOR\TEZACAFTOR
  4. VITAMIN D3 [Concomitant]
     Active Substance: CHOLECALCIFEROL
  5. MONTELUKAST [Concomitant]
     Active Substance: MONTELUKAST SODIUM
  6. OMEPRAZOLE. [Concomitant]
     Active Substance: OMEPRAZOLE
  7. AZTREONAM LYSINE [Suspect]
     Active Substance: AZTREONAM LYSINE
     Indication: CYSTIC FIBROSIS LUNG
     Dosage: 75 MG, TID
     Route: 055
     Dates: start: 20190620
  8. FLUTICASONE. [Concomitant]
     Active Substance: FLUTICASONE
  9. LEVALBUTEROL [LEVOSALBUTAMOL HYDROCHLORIDE] [Concomitant]
     Active Substance: LEVALBUTEROL HYDROCHLORIDE
  10. MVW COMPLETE FORMULATION D3000 [Concomitant]
     Active Substance: VITAMINS\ZINC
  11. PULMOZYME [Concomitant]
     Active Substance: DORNASE ALFA
  12. LORATADINE. [Concomitant]
     Active Substance: LORATADINE
  13. LEVOFLOXACIN. [Concomitant]
     Active Substance: LEVOFLOXACIN
  14. CETIRIZINE [Concomitant]
     Active Substance: CETIRIZINE HYDROCHLORIDE

REACTIONS (1)
  - Condition aggravated [Unknown]
